FAERS Safety Report 14056021 (Version 1)
Quarter: 2017Q4

REPORT INFORMATION
  Report Type: Report from Study
  Country: NL (occurrence: NL)
  Receive Date: 20171006
  Receipt Date: 20171006
  Transmission Date: 20180321
  Serious: Yes (Hospitalization)
  Sender: FDA-Public Use
  Company Number: NL-TEVA-813080ROM

PATIENT
  Age: 31 Year
  Sex: Male

DRUGS (1)
  1. METHYLPHENIDATE. [Suspect]
     Active Substance: METHYLPHENIDATE
     Dosage: 19.1MG/KG IMMEDIATE RELEASE
     Route: 048

REACTIONS (5)
  - Headache [Unknown]
  - Toxicity to various agents [Unknown]
  - Hypertension [Unknown]
  - Electrocardiogram ST segment elevation [Unknown]
  - Electrocardiogram T wave peaked [Unknown]
